FAERS Safety Report 24984466 (Version 1)
Quarter: 2025Q1

REPORT INFORMATION
  Report Type: Spontaneous
  Country: US (occurrence: US)
  Receive Date: 20250219
  Receipt Date: 20250219
  Transmission Date: 20250408
  Serious: No
  Sender: VALIDUS
  Company Number: US-VALIDUS PHARMACEUTICALS LLC-US-VDP-2024-019251

PATIENT

DRUGS (8)
  1. LASIX [Suspect]
     Active Substance: FUROSEMIDE
     Indication: Oedema
     Route: 065
  2. LASIX [Suspect]
     Active Substance: FUROSEMIDE
     Route: 065
  3. ROSUVASTATIN [Suspect]
     Active Substance: ROSUVASTATIN
     Indication: Blood triglycerides increased
     Route: 065
  4. PREGABALIN [Suspect]
     Active Substance: PREGABALIN
     Indication: Product used for unknown indication
     Route: 065
  5. ALFUZOSIN HYDROCHLORIDE [Suspect]
     Active Substance: ALFUZOSIN HYDROCHLORIDE
     Indication: Product used for unknown indication
     Route: 065
  6. CYMBALTA [Suspect]
     Active Substance: DULOXETINE HYDROCHLORIDE
     Indication: Product used for unknown indication
     Route: 065
  7. FINASTERIDE [Suspect]
     Active Substance: FINASTERIDE
     Indication: Product used for unknown indication
     Route: 065
  8. VYNDAQEL [Suspect]
     Active Substance: TAFAMIDIS MEGLUMINE
     Indication: Product used for unknown indication
     Dosage: TAKE 80 MG BY MOUTH ONCE DAILY
     Route: 048

REACTIONS (4)
  - Drug ineffective [Unknown]
  - Blood pressure fluctuation [Unknown]
  - Product quality issue [Unknown]
  - Hypoacusis [Unknown]
